FAERS Safety Report 9002594 (Version 1)
Quarter: 2013Q1

REPORT INFORMATION
  Report Type: Spontaneous
  Country: GB (occurrence: GB)
  Receive Date: 20130107
  Receipt Date: 20130107
  Transmission Date: 20140127
  Serious: Yes (Death)
  Sender: FDA-Public Use
  Company Number: GB-PFIZER INC-2013002310

PATIENT
  Age: 22 Month
  Sex: Male
  Weight: 10.8 kg

DRUGS (3)
  1. SILDENAFIL CITRATE [Suspect]
     Dosage: 4 MG, 4X/DAY
     Route: 048
     Dates: start: 20120213, end: 20120901
  2. DOMPERIDONE MALEATE [Concomitant]
  3. RANITIDINE HYDROCHLORIDE [Concomitant]

REACTIONS (1)
  - Cerebral infarction [Fatal]
